FAERS Safety Report 15978999 (Version 2)
Quarter: 2019Q1

REPORT INFORMATION
  Report Type: Report from Study
  Country: US (occurrence: US)
  Receive Date: 20190219
  Receipt Date: 20190314
  Transmission Date: 20190418
  Serious: Yes (Death, Other)
  Sender: FDA-Public Use
  Company Number: US-EMD SERONO-9072683

PATIENT
  Sex: Female

DRUGS (1)
  1. REBIF [Suspect]
     Active Substance: INTERFERON BETA-1A
     Indication: MULTIPLE SCLEROSIS
     Route: 058
     Dates: start: 2010

REACTIONS (6)
  - Fall [Unknown]
  - Sepsis [Fatal]
  - Multiple sclerosis [Unknown]
  - Pneumonia aspiration [Fatal]
  - Hip fracture [Fatal]
  - Fat embolism [Fatal]
